FAERS Safety Report 5072590-X (Version None)
Quarter: 2006Q3

REPORT INFORMATION
  Report Type: 
  Country: None (occurrence: None)
  Receive Date: 20060807
  Receipt Date: 20060726
  Transmission Date: 20061208
  Serious: Yes (Life-Threatening)
  Sender: FDA-Public Use
  Company Number: JP-JNJFOC-20060704485

PATIENT
  Age: 82 Year
  Sex: Female

DRUGS (5)
  1. RISPERDAL [Suspect]
     Indication: AGITATION
     Route: 048
  2. RISPERDAL [Suspect]
     Indication: DELIRIUM
     Route: 048
  3. ABILIFY [Suspect]
     Indication: DRUG USE FOR UNKNOWN INDICATION
     Route: 048
  4. TASMOLIN [Suspect]
     Indication: DRUG USE FOR UNKNOWN INDICATION
     Route: 048
  5. LENDORMIN [Concomitant]
     Route: 048

REACTIONS (5)
  - APNOEA [None]
  - BLOOD PRESSURE DECREASED [None]
  - PULMONARY THROMBOSIS [None]
  - RESPIRATORY ARREST [None]
  - SHOCK [None]
